FAERS Safety Report 9860009 (Version 2)
Quarter: 2014Q2

REPORT INFORMATION
  Report Type: Spontaneous
  Country: US (occurrence: US)
  Receive Date: 20140131
  Receipt Date: 20140512
  Transmission Date: 20141212
  Serious: Yes (Death, Hospitalization, Other)
  Sender: FDA-Public Use
  Company Number: US-GILEAD-2014-0093371

PATIENT
  Age: 76 Year
  Sex: Female
  Weight: 61.68 kg

DRUGS (22)
  1. LETAIRIS [Suspect]
     Indication: PULMONARY HYPERTENSION
     Dosage: 10 MG, QD
     Route: 048
     Dates: start: 201001, end: 20131112
  2. DURAGESIC                          /00174601/ [Suspect]
     Indication: PRODUCT USED FOR UNKNOWN INDICATION
     Route: 062
  3. REVATIO [Concomitant]
  4. XIFAXAN [Concomitant]
  5. FORTEO [Concomitant]
  6. ZOSYN [Concomitant]
  7. PROTONIX [Concomitant]
  8. LEVALBUTEROL [Concomitant]
  9. MUPIROCIN [Concomitant]
  10. GABAPENTIN [Concomitant]
  11. DIGOXIN [Concomitant]
  12. AMIODARONE [Concomitant]
  13. SOLU-MEDROL [Concomitant]
  14. SPIRIVA [Concomitant]
  15. METHOTREXATE [Concomitant]
  16. LASIX                              /00032601/ [Concomitant]
  17. ENBREL [Concomitant]
  18. OMEPRAZOLE [Concomitant]
  19. PROZAC [Concomitant]
  20. SPIRONOLACTONE [Concomitant]
  21. VENTAVIS [Concomitant]
  22. WARFARIN [Concomitant]

REACTIONS (3)
  - Pneumonia [Fatal]
  - Disease progression [Fatal]
  - Altered state of consciousness [Recovered/Resolved with Sequelae]
